FAERS Safety Report 8525569-7 (Version None)
Quarter: 2012Q3

REPORT INFORMATION
  Report Type: 
  Country: None (occurrence: None)
  Receive Date: 20120720
  Receipt Date: 20120718
  Transmission Date: 20120928
  Serious: Yes (Other)
  Sender: FDA-Public Use
  Company Number: US-PURDUE-USA-2012-0089127

PATIENT
  Sex: Female

DRUGS (6)
  1. BUTRANS [Suspect]
     Indication: PAIN
     Dosage: 5 MCG/HR, UNK
     Route: 062
     Dates: start: 20120620, end: 20120623
  2. HORMONES [Concomitant]
     Indication: PRODUCT USED FOR UNKNOWN INDICATION
  3. RANITIDINE [Concomitant]
     Indication: PRODUCT USED FOR UNKNOWN INDICATION
  4. OMEPRAZOLE [Concomitant]
     Indication: PRODUCT USED FOR UNKNOWN INDICATION
  5. INSULIN                            /00646001/ [Concomitant]
     Indication: PRODUCT USED FOR UNKNOWN INDICATION
     Route: 058
  6. DOMPERIDONE [Concomitant]
     Indication: PRODUCT USED FOR UNKNOWN INDICATION

REACTIONS (14)
  - APPLICATION SITE PRURITUS [None]
  - BLOOD GLUCOSE DECREASED [None]
  - NAUSEA [None]
  - APPLICATION SITE VESICLES [None]
  - MALAISE [None]
  - LOSS OF CONSCIOUSNESS [None]
  - HEADACHE [None]
  - MEMORY IMPAIRMENT [None]
  - COLD SWEAT [None]
  - PAIN IN EXTREMITY [None]
  - MYOCARDIAL INFARCTION [None]
  - CHEST PAIN [None]
  - ABDOMINAL DISCOMFORT [None]
  - VOMITING [None]
